FAERS Safety Report 10883060 (Version 1)
Quarter: 2015Q1

REPORT INFORMATION
  Report Type: Spontaneous
  Country: GT (occurrence: GT)
  Receive Date: 20150303
  Receipt Date: 20150303
  Transmission Date: 20150721
  Serious: Yes (Life-Threatening, Hospitalization, Other)
  Sender: FDA-Public Use
  Company Number: GT-GLAXOSMITHKLINE-GT2015GSK026148

PATIENT
  Sex: Female

DRUGS (3)
  1. LAMICTAL [Suspect]
     Active Substance: LAMOTRIGINE
     Indication: HYPOMANIA
     Dosage: 50 UNK, UNK
  2. LAMICTAL [Suspect]
     Active Substance: LAMOTRIGINE
     Indication: DEPRESSION
     Dosage: 25 MG, QD
  3. LAMICTAL [Suspect]
     Active Substance: LAMOTRIGINE
     Indication: MOOD ALTERED

REACTIONS (3)
  - Stevens-Johnson syndrome [Recovered/Resolved]
  - Dysphagia [Unknown]
  - Rash [Unknown]

NARRATIVE: CASE EVENT DATE: 201409
